FAERS Safety Report 12839224 (Version 1)
Quarter: 2016Q4

REPORT INFORMATION
  Report Type: Spontaneous
  Country: US (occurrence: US)
  Receive Date: 20161012
  Receipt Date: 20161012
  Transmission Date: 20170207
  Serious: Yes (Death)
  Sender: FDA-Public Use
  Company Number: None

PATIENT
  Age: 68 Year
  Sex: Male
  Weight: 81.19 kg

DRUGS (3)
  1. ATENOLOL. [Concomitant]
     Active Substance: ATENOLOL
  2. PRALUENT [Suspect]
     Active Substance: ALIROCUMAB
     Indication: BLOOD CHOLESTEROL INCREASED
     Dosage: PRALUENT 75 MG/ML PEN - 2 PENS (PREFILLED) - 1 INJECTION EVERY 2 WEEKS
     Dates: start: 201605, end: 20160623
  3. ANEBULIVER [Concomitant]

REACTIONS (5)
  - Brain neoplasm [None]
  - Pulmonary thrombosis [None]
  - Gait disturbance [None]
  - Cerebral haemorrhage [None]
  - Back disorder [None]

NARRATIVE: CASE EVENT DATE: 20160806
